FAERS Safety Report 21825662 (Version 6)
Quarter: 2023Q2

REPORT INFORMATION
  Report Type: Report from Study
  Country: US (occurrence: US)
  Receive Date: 20230105
  Receipt Date: 20230511
  Transmission Date: 20230721
  Serious: Yes (Hospitalization, Other)
  Sender: FDA-Public Use
  Company Number: US-ACADIA PHARMACEUTICALS INC.-ACA-2022-PIM-004520

PATIENT
  Age: 73 Year
  Sex: Male

DRUGS (7)
  1. NUPLAZID [Suspect]
     Active Substance: PIMAVANSERIN TARTRATE
     Indication: Parkinson^s disease psychosis
     Dosage: 34 MILLIGRAM, QD
     Route: 048
     Dates: start: 20221220
  2. NUPLAZID [Suspect]
     Active Substance: PIMAVANSERIN TARTRATE
     Indication: Parkinson^s disease
     Dosage: 34 MILLIGRAM, QD
     Route: 048
  3. NUPLAZID [Suspect]
     Active Substance: PIMAVANSERIN TARTRATE
     Dosage: TAKEN ALL OF NUPLAZID FOR THE DAY
     Dates: start: 20230121, end: 20230220
  4. NUPLAZID [Suspect]
     Active Substance: PIMAVANSERIN TARTRATE
     Dosage: 34 MILLIGRAM, QD
     Route: 048
     Dates: start: 20230301
  5. CARBIDOPA LEVODOPA [Concomitant]
     Active Substance: CARBIDOPA\LEVODOPA
     Dosage: 25/100
     Dates: start: 20170711
  6. NOURIANZ [Concomitant]
     Active Substance: ISTRADEFYLLINE
     Dosage: UNK
     Dates: start: 20200519
  7. ONGENTYS [Concomitant]
     Active Substance: OPICAPONE
     Dosage: UNK
     Dates: start: 20211005

REACTIONS (21)
  - Cardiac failure congestive [Recovered/Resolved]
  - Atrial fibrillation [Recovered/Resolved]
  - Atrial fibrillation [Not Recovered/Not Resolved]
  - Headache [Not Recovered/Not Resolved]
  - Pain [Not Recovered/Not Resolved]
  - Cardiac failure congestive [Unknown]
  - Memory impairment [Not Recovered/Not Resolved]
  - Atrial fibrillation [Unknown]
  - Abnormal behaviour [Recovered/Resolved]
  - Agitation [Not Recovered/Not Resolved]
  - Peripheral swelling [Not Recovered/Not Resolved]
  - Confusional state [Recovered/Resolved]
  - Condition aggravated [Unknown]
  - Headache [Not Recovered/Not Resolved]
  - Malaise [Recovered/Resolved]
  - Sleep disorder [Recovered/Resolved]
  - Product dose omission issue [Recovered/Resolved]
  - Hallucination [Unknown]
  - Drug ineffective [Unknown]
  - Fall [Recovered/Resolved]
  - Overdose [Not Recovered/Not Resolved]

NARRATIVE: CASE EVENT DATE: 20221130
